FAERS Safety Report 6067463-X (Version None)
Quarter: 2009Q1

REPORT INFORMATION
  Report Type: 
  Country: None (occurrence: None)
  Receive Date: 20090205
  Receipt Date: 20090126
  Transmission Date: 20090719
  Serious: Yes (Hospitalization)
  Sender: FDA-Public Use
  Company Number: GB-ELI_LILLY_AND_COMPANY-GB200805001522

PATIENT
  Sex: Female

DRUGS (6)
  1. CYMBALTA [Suspect]
     Indication: DEPRESSION
     Dosage: 60 MG, DAILY (1/D)
     Route: 048
     Dates: start: 20070719, end: 20081111
  2. NULYTELY [Concomitant]
     Indication: CONSTIPATION
     Dosage: 2 D/F, DAILY (1/D)
     Dates: start: 20080407
  3. ERYTHROMYCIN [Concomitant]
     Indication: SKIN INFECTION
     Dosage: 250 MG, UNKNOWN
     Route: 065
     Dates: start: 20080630, end: 20080705
  4. ISPAGHULA HUSK [Concomitant]
     Indication: CONSTIPATION
     Dosage: UNK, 2/D
     Route: 065
     Dates: start: 20080327, end: 20080407
  5. CLOTRIMAZOLE [Concomitant]
     Dosage: UNK, UNKNOWN
     Route: 067
     Dates: start: 20080908
  6. FLUCLOXACILLIN [Concomitant]
     Indication: POSTOPERATIVE WOUND INFECTION
     Dosage: UNK, UNKNOWN
     Dates: start: 20080917

REACTIONS (4)
  - ANTEPARTUM HAEMORRHAGE [None]
  - DRUG EXPOSURE DURING PREGNANCY [None]
  - DRUG EXPOSURE VIA BREAST MILK [None]
  - POSTPARTUM DEPRESSION [None]
